FAERS Safety Report 16405542 (Version 1)
Quarter: 2019Q2

REPORT INFORMATION
  Report Type: Spontaneous
  Country: US (occurrence: US)
  Receive Date: 20190502
  Receipt Date: 20190502
  Transmission Date: 20190711
  Serious: No
  Sender: FDA-Public Use
  Company Number: None

PATIENT
  Age: 39 Year
  Sex: Female

DRUGS (1)
  1. TACROLIMUS CAP [Suspect]
     Active Substance: TACROLIMUS
     Route: 048
     Dates: start: 201804

REACTIONS (7)
  - Product dispensing error [None]
  - Heart rate decreased [None]
  - Blood pressure decreased [None]
  - Incorrect dose administered [None]
  - Vomiting [None]
  - Syncope [None]
  - Nausea [None]

NARRATIVE: CASE EVENT DATE: 20190502
